FAERS Safety Report 16276832 (Version 1)
Quarter: 2019Q2

REPORT INFORMATION
  Report Type: Spontaneous
  Country: CO (occurrence: CO)
  Receive Date: 20190506
  Receipt Date: 20190506
  Transmission Date: 20190711
  Serious: Yes (Other)
  Sender: FDA-Public Use
  Company Number: CO-PFIZER INC-2019191152

PATIENT
  Age: 79 Year
  Sex: Female

DRUGS (1)
  1. SOMESE [Suspect]
     Active Substance: TRIAZOLAM
     Indication: INSOMNIA
     Dosage: 1 DF, DAILY
     Dates: start: 1989

REACTIONS (2)
  - Drug dependence [Unknown]
  - Intentional product use issue [Unknown]
